FAERS Safety Report 11287648 (Version 1)
Quarter: 2015Q3

REPORT INFORMATION
  Report Type: Spontaneous
  Country: US (occurrence: US)
  Receive Date: 20150721
  Receipt Date: 20150721
  Transmission Date: 20151125
  Serious: No
  Sender: FDA-Public Use
  Company Number: US-PFIZER INC-2015241919

PATIENT
  Age: 31 Year
  Sex: Female
  Weight: 59 kg

DRUGS (3)
  1. CHANTIX [Suspect]
     Active Substance: VARENICLINE TARTRATE
     Dosage: 1 MG, 2X/DAY
     Dates: start: 201507
  2. CHANTIX [Suspect]
     Active Substance: VARENICLINE TARTRATE
     Indication: SMOKING CESSATION THERAPY
     Dosage: 0.5 MG, ONCE A DAY FOR ONE WEEK
     Dates: start: 201507, end: 201507
  3. CHANTIX [Suspect]
     Active Substance: VARENICLINE TARTRATE
     Dosage: 1 MG, 1X/DAY FOR THREE DAYS
     Dates: start: 201507, end: 201507

REACTIONS (6)
  - Headache [Recovered/Resolved]
  - Nausea [Recovered/Resolved]
  - Malaise [Recovered/Resolved]
  - Drug intolerance [Not Recovered/Not Resolved]
  - Vomiting [Recovered/Resolved]
  - Nervousness [Unknown]

NARRATIVE: CASE EVENT DATE: 201507
